FAERS Safety Report 7788588-4 (Version None)
Quarter: 2011Q3

REPORT INFORMATION
  Report Type: 
  Country: None (occurrence: None)
  Receive Date: 20110930
  Receipt Date: 20110921
  Transmission Date: 20111222
  Serious: Yes (Life-Threatening, Hospitalization)
  Sender: FDA-Public Use
  Company Number: PL-SANOFI-AVENTIS-2011SA057727

PATIENT
  Age: 67 Year
  Sex: Male
  Weight: 65 kg

DRUGS (8)
  1. DOCETAXEL [Suspect]
     Indication: NON-SMALL CELL LUNG CANCER METASTATIC
     Route: 042
     Dates: start: 20110629, end: 20110629
  2. BISOPROLOL [Concomitant]
     Route: 048
     Dates: start: 20110518
  3. DOCETAXEL [Suspect]
     Route: 042
     Dates: start: 20110901, end: 20110901
  4. OMBRABULIN [Suspect]
     Indication: NON-SMALL CELL LUNG CANCER METASTATIC
     Route: 042
     Dates: start: 20110629, end: 20110629
  5. IPRATROPIUM BROMIDE [Concomitant]
     Dates: start: 20110518
  6. CISPLATIN [Suspect]
     Indication: NON-SMALL CELL LUNG CANCER METASTATIC
     Route: 042
     Dates: start: 20110629, end: 20110629
  7. CISPLATIN [Suspect]
     Route: 042
     Dates: start: 20110901, end: 20110901
  8. OMBRABULIN [Suspect]
     Route: 042
     Dates: start: 20110831, end: 20110831

REACTIONS (3)
  - ISCHAEMIC STROKE [None]
  - CAROTID ARTERY STENOSIS [None]
  - LEUKOCYTOSIS [None]
